FAERS Safety Report 20683128 (Version 1)
Quarter: 2022Q2

REPORT INFORMATION
  Report Type: Spontaneous
  Country: US (occurrence: US)
  Receive Date: 20220407
  Receipt Date: 20220407
  Transmission Date: 20220721
  Serious: No
  Sender: FDA-Public Use
  Company Number: US-BRISTOL-MYERS SQUIBB COMPANY-2022-013930

PATIENT
  Age: 49 Year
  Sex: Female

DRUGS (5)
  1. THALOMID [Suspect]
     Active Substance: THALIDOMIDE
     Indication: Plasma cell myeloma
     Route: 048
     Dates: start: 20160317
  2. THALOMID [Suspect]
     Active Substance: THALIDOMIDE
     Indication: Pemphigoid
  3. THALOMID [Suspect]
     Active Substance: THALIDOMIDE
     Indication: Dermatitis atopic
  4. THALOMID [Suspect]
     Active Substance: THALIDOMIDE
     Indication: Pemphigoid
  5. DUPIXENT THERAPY [Concomitant]
     Indication: Product used for unknown indication
     Dates: start: 202201

REACTIONS (2)
  - Vision blurred [Unknown]
  - Prescribed underdose [Unknown]
